FAERS Safety Report 24253614 (Version 1)
Quarter: 2024Q3

REPORT INFORMATION
  Report Type: Spontaneous
  Country: US (occurrence: None)
  Receive Date: 20240826
  Receipt Date: 20240826
  Transmission Date: 20241016
  Serious: Yes (Other)
  Sender: Public
  Company Number: None

PATIENT
  Age: 70 Year
  Sex: Female

DRUGS (4)
  1. ADBRY [Suspect]
     Active Substance: TRALOKINUMAB-LDRM
     Indication: Dermatitis atopic
     Dosage: OTHER QUANTITY : 2 SYRINGES (300MG/2ML) ;?OTHER FREQUENCY : Q 14 DAYS;?
     Route: 058
     Dates: start: 20230228, end: 20240814
  2. Venlfaxine [Concomitant]
  3. LOSARTAN [Concomitant]
  4. Metatonin [Concomitant]

REACTIONS (1)
  - Renal impairment [None]

NARRATIVE: CASE EVENT DATE: 20240814
